FAERS Safety Report 6874038-9 (Version None)
Quarter: 2010Q3

REPORT INFORMATION
  Report Type: 
  Country: None (occurrence: None)
  Receive Date: 20100723
  Receipt Date: 20100709
  Transmission Date: 20110219
  Serious: Yes (Hospitalization)
  Sender: FDA-Public Use
  Company Number: RB-13214-2010

PATIENT
  Sex: Male
  Weight: 63 kg

DRUGS (1)
  1. SUBOXONE [Suspect]
     Indication: DEPENDENCE
     Dosage: (12 MG ORAL)
     Route: 048
     Dates: start: 20100607

REACTIONS (3)
  - HAEMATOTOXICITY [None]
  - PNEUMONIA [None]
  - STAPHYLOCOCCAL INFECTION [None]
